FAERS Safety Report 8925942 (Version 2)
Quarter: 2013Q1

REPORT INFORMATION
  Report Type: Spontaneous
  Country: US (occurrence: US)
  Receive Date: 20121126
  Receipt Date: 20130215
  Transmission Date: 20140127
  Serious: Yes (Other)
  Sender: FDA-Public Use
  Company Number: PHHY2012US105508

PATIENT
  Sex: Female

DRUGS (2)
  1. GENTEAL [Suspect]
     Dosage: 1 DF, ONCE/SINGLE
     Dates: start: 201211, end: 201211
  2. ARMOUR THYROID [Concomitant]

REACTIONS (4)
  - Corneal oedema [Not Recovered/Not Resolved]
  - Visual acuity reduced [Not Recovered/Not Resolved]
  - Eye pain [Not Recovered/Not Resolved]
  - Dry eye [Not Recovered/Not Resolved]
